FAERS Safety Report 6644299-X (Version None)
Quarter: 2010Q1

REPORT INFORMATION
  Report Type: 
  Country: None (occurrence: None)
  Receive Date: 20100322
  Receipt Date: 20100303
  Transmission Date: 20100710
  Serious: Yes (Death)
  Sender: FDA-Public Use
  Company Number: PHHY2010CA12240

PATIENT
  Sex: Female

DRUGS (1)
  1. ACLASTA [Suspect]
     Indication: OSTEOPOROSIS
     Dosage: UNK
     Dates: start: 20090527

REACTIONS (5)
  - FEBRILE NEUTROPENIA [None]
  - HODGKIN'S DISEASE [None]
  - PNEUMONIA [None]
  - RESPIRATORY FAILURE [None]
  - TRACHEAL OBSTRUCTION [None]
